FAERS Safety Report 18405757 (Version 1)
Quarter: 2020Q4

REPORT INFORMATION
  Report Type: Spontaneous
  Country: US (occurrence: US)
  Receive Date: 20201020
  Receipt Date: 20201020
  Transmission Date: 20210114
  Serious: No
  Sender: FDA-Public Use
  Company Number: US-ELI_LILLY_AND_COMPANY-US202009011558

PATIENT
  Age: 69 Year
  Sex: Female

DRUGS (5)
  1. TRULICITY [Suspect]
     Active Substance: DULAGLUTIDE
     Indication: EATING DISORDER
  2. HEPARIN [Suspect]
     Active Substance: HEPARIN SODIUM
     Indication: PRODUCT USED FOR UNKNOWN INDICATION
     Dosage: UNK UNK, UNKNOWN
     Route: 065
  3. TRULICITY [Suspect]
     Active Substance: DULAGLUTIDE
     Indication: SLEEP DISORDER
     Dosage: 1.5 MG, UNKNOWN
     Route: 065
     Dates: start: 202003
  4. TRULICITY [Suspect]
     Active Substance: DULAGLUTIDE
     Indication: SLEEP DISORDER
     Dosage: 0.75 MG, UNKNOWN
     Route: 065
     Dates: start: 2019
  5. TRULICITY [Suspect]
     Active Substance: DULAGLUTIDE
     Indication: EATING DISORDER
     Dosage: 1.5 MG, UNKNOWN
     Route: 065
     Dates: start: 202003

REACTIONS (6)
  - Eating disorder [Unknown]
  - Injection site erythema [Recovering/Resolving]
  - Injection site pruritus [Recovering/Resolving]
  - Sleep disorder [Unknown]
  - Injection site reaction [Recovering/Resolving]
  - Rubber sensitivity [Unknown]

NARRATIVE: CASE EVENT DATE: 202008
